FAERS Safety Report 10061147 (Version 1)
Quarter: 2014Q2

REPORT INFORMATION
  Report Type: Spontaneous
  Country: DE (occurrence: DE)
  Receive Date: 20140406
  Receipt Date: 20140406
  Transmission Date: 20141212
  Serious: Yes (Other)
  Sender: FDA-Public Use
  Company Number: DE-BRISTOL-MYERS SQUIBB COMPANY-20573192

PATIENT
  Age: 76 Year
  Sex: Male

DRUGS (11)
  1. ELIQUIS [Suspect]
     Indication: ATRIAL FIBRILLATION
     Dosage: TABS
     Dates: start: 20140311
  2. PANTOZOL [Concomitant]
  3. RAMIPRIL [Concomitant]
  4. METOPROLOL [Concomitant]
  5. DIGITOXIN [Concomitant]
  6. ALLOPURINOL [Concomitant]
  7. TORASEMIDE [Concomitant]
     Dosage: FREGUENCY 1 IN MORNING, HALF IN AFTERNOON
  8. SIMVAHEXAL [Concomitant]
  9. ORTOTON [Concomitant]
  10. TARGIN [Concomitant]
     Dosage: 1 DF=10/ 5 MG.RETARD
  11. AMITRIPTYLINE [Concomitant]

REACTIONS (1)
  - Dementia [Not Recovered/Not Resolved]
